FAERS Safety Report 6084270-2 (Version None)
Quarter: 2009Q1

REPORT INFORMATION
  Report Type: 
  Country: None (occurrence: None)
  Receive Date: 20090219
  Receipt Date: 20090217
  Transmission Date: 20090719
  Serious: Yes (Life-Threatening, Disabling)
  Sender: FDA-Public Use
  Company Number: PHRM2003FR01639

PATIENT
  Sex: Male
  Weight: 82 kg

DRUGS (16)
  1. LEPONEX [Suspect]
     Indication: SCHIZOPHRENIA
     Dosage: 250 MG, UNK
     Route: 048
     Dates: start: 19950101, end: 20030401
  2. SOLIAN [Suspect]
     Route: 048
  3. ZOLOFT [Suspect]
     Indication: DEPRESSION
     Dosage: 50 MG, BID
     Route: 048
     Dates: start: 20021101, end: 20030301
  4. THERALENE [Suspect]
     Dosage: 40 DROPS QD
     Route: 048
  5. STILNOX [Suspect]
  6. ATARAX [Suspect]
     Dosage: 25 MG, QD
     Route: 048
  7. LEPTICUR [Suspect]
     Dosage: 25 MG, QD
  8. XANAX [Concomitant]
     Indication: DEPRESSION
     Dosage: .5 MG, TID
  9. ANAFRANIL [Concomitant]
     Indication: DEPRESSION
     Dosage: 75 MG, BID
     Route: 048
     Dates: start: 20010601, end: 20021101
  10. EFEXOR [Concomitant]
     Indication: DEPRESSION
     Dosage: 50 MG, TID
     Route: 048
     Dates: start: 20030301
  11. ZYPREXA [Concomitant]
     Dosage: 10 MG DAILY
  12. DEPAKOTE [Concomitant]
     Dosage: 100 MG DAILY
  13. TERCIAN [Concomitant]
     Dosage: 50 MG DAILY
  14. TERCIAN [Concomitant]
     Dosage: 25 MG DAILY
     Dates: start: 20070604
  15. FLUOXETINE HCL [Concomitant]
     Dosage: 20MG DAILY
     Dates: start: 20070604
  16. SINEMET [Concomitant]
     Dosage: UNK
     Dates: start: 20080218

REACTIONS (7)
  - BLOOD IMMUNOGLOBULIN A DECREASED [None]
  - CHRONIC LYMPHOCYTIC LEUKAEMIA [None]
  - LYMPHADENOPATHY [None]
  - LYMPHOCYTE COUNT INCREASED [None]
  - LYMPHOCYTOSIS [None]
  - NEUTROPHIL COUNT INCREASED [None]
  - WHITE BLOOD CELL COUNT INCREASED [None]
